FAERS Safety Report 10056505 (Version 2)
Quarter: 2014Q2

REPORT INFORMATION
  Report Type: Spontaneous
  Country: FR (occurrence: FR)
  Receive Date: 20140403
  Receipt Date: 20140411
  Transmission Date: 20141212
  Serious: Yes (Hospitalization)
  Sender: FDA-Public Use
  Company Number: FR-PFIZER INC-2014092211

PATIENT
  Age: 69 Year
  Sex: Male

DRUGS (9)
  1. SOLU-MEDROL [Suspect]
     Indication: PROPHYLAXIS OF NAUSEA AND VOMITING
     Dosage: 80 MG, DAILY
     Route: 042
     Dates: start: 20140213, end: 20140213
  2. SOLU-MEDROL [Suspect]
     Dosage: UNK
     Dates: start: 20140306, end: 20140306
  3. ELOXATINE [Suspect]
     Indication: COLORECTAL CANCER METASTATIC
     Dosage: 160 MG, DAILY
     Route: 042
     Dates: start: 20140213, end: 20140213
  4. AVASTIN [Suspect]
     Indication: COLORECTAL CANCER METASTATIC
     Dosage: 400 MG, DAILY (TOTAL DOSE)
     Route: 042
     Dates: start: 20130213, end: 20130213
  5. AVASTIN [Suspect]
     Dosage: UNK
     Route: 042
     Dates: start: 20140306, end: 20140306
  6. ELVORINE [Concomitant]
     Indication: PROPHYLAXIS
     Dosage: 380 MG, DAILY
     Route: 041
     Dates: start: 20140213, end: 20140213
  7. FLUOROURACIL [Concomitant]
     Indication: COLORECTAL CANCER METASTATIC
     Dosage: 4600 MG SCHEDULED
     Route: 042
     Dates: start: 20130213, end: 20130213
  8. FLUOROURACIL [Concomitant]
     Dosage: UNK
     Dates: start: 20140306, end: 20140306
  9. PRIMPERAN [Concomitant]
     Indication: PREMEDICATION
     Dosage: UNK

REACTIONS (7)
  - Chills [Recovered/Resolved]
  - Epistaxis [Recovered/Resolved]
  - Thrombocytopenic purpura [Recovered/Resolved]
  - Thrombocytopenia [Recovered/Resolved]
  - Hypotension [Recovered/Resolved]
  - Pyrexia [Recovered/Resolved]
  - Asthenia [Not Recovered/Not Resolved]
